FAERS Safety Report 8519532-X (Version None)
Quarter: 2012Q3

REPORT INFORMATION
  Report Type: 
  Country: None (occurrence: None)
  Receive Date: 20120718
  Receipt Date: 20100724
  Transmission Date: 20120928
  Serious: Yes (Death, Hospitalization)
  Sender: FDA-Public Use
  Company Number: PHHY2012KR046209

PATIENT
  Age: 61 Year
  Sex: Female

DRUGS (1)
  1. IMATINIB MESYLATE [Suspect]
     Indication: CHRONIC MYELOID LEUKAEMIA
     Dosage: UNK UKN, UNK

REACTIONS (15)
  - GRAND MAL CONVULSION [None]
  - DRUG RESISTANCE [None]
  - DECREASED APPETITE [None]
  - LEUKOCYTOSIS [None]
  - HYPOXIA [None]
  - PNEUMONIA [None]
  - NAUSEA [None]
  - AZOTAEMIA [None]
  - PYREXIA [None]
  - GENERAL PHYSICAL HEALTH DETERIORATION [None]
  - DEATH [None]
  - ILEUS [None]
  - BLAST CRISIS IN MYELOGENOUS LEUKAEMIA [None]
  - ASTHENIA [None]
  - DYSPNOEA [None]
